FAERS Safety Report 6508339-0 (Version None)
Quarter: 2009Q4

REPORT INFORMATION
  Report Type: 
  Country: None (occurrence: None)
  Receive Date: 20091221
  Receipt Date: 20090708
  Transmission Date: 20100525
  Serious: No
  Sender: FDA-Public Use
  Company Number: US-ASTRAZENECA-2006UW04451

PATIENT
  Age: 63 Year
  Sex: Female
  Weight: 63.5 kg

DRUGS (8)
  1. CRESTOR [Suspect]
     Indication: BLOOD CHOLESTEROL INCREASED
     Route: 048
     Dates: start: 20050901
  2. PROVERA [Concomitant]
  3. CENESTIN [Concomitant]
  4. CALCIUM [Concomitant]
  5. VITAMIN B COMPLEX CAP [Concomitant]
  6. DIOVAN [Concomitant]
  7. PREMPRO [Concomitant]
  8. LOVAZA [Concomitant]

REACTIONS (2)
  - HEPATIC ENZYME INCREASED [None]
  - PAIN IN EXTREMITY [None]
